FAERS Safety Report 7125372-9 (Version None)
Quarter: 2010Q4

REPORT INFORMATION
  Report Type: 
  Country: None (occurrence: None)
  Receive Date: 20101129
  Receipt Date: 20101122
  Transmission Date: 20110411
  Serious: Yes (Other)
  Sender: FDA-Public Use
  Company Number: BR-ROCHE-718586

PATIENT
  Sex: Female
  Weight: 65 kg

DRUGS (15)
  1. TOCILIZUMAB [Suspect]
     Indication: RHEUMATOID ARTHRITIS
     Dosage: FORM: INFUSION
     Route: 042
     Dates: start: 20100716
  2. TOCILIZUMAB [Suspect]
     Route: 042
     Dates: start: 20100813, end: 20100910
  3. RITUXIMAB [Suspect]
     Indication: RHEUMATOID ARTHRITIS
     Dosage: DOSE: 1000 MG/ML, FORM:INFUSION
     Route: 042
     Dates: start: 20100501, end: 20100501
  4. DIOVAN [Concomitant]
  5. PANTOPRAZOLE [Concomitant]
  6. METICORTEN [Concomitant]
  7. METICORTEN [Concomitant]
  8. METHOTREXATE [Concomitant]
  9. ENDOFOLIN [Concomitant]
  10. CELEBRA [Concomitant]
     Indication: PAIN
  11. ASPIRIN [Concomitant]
     Dosage: AFTER LUNCH
  12. ATENOLOL [Concomitant]
  13. SUSTRATE [Concomitant]
  14. NORVASC [Concomitant]
  15. PREDSIM [Concomitant]

REACTIONS (9)
  - ABDOMINAL PAIN [None]
  - ARTHRALGIA [None]
  - BODY HEIGHT DECREASED [None]
  - DRUG INEFFECTIVE [None]
  - FEELING OF DESPAIR [None]
  - GAIT DISTURBANCE [None]
  - MALAISE [None]
  - PAIN [None]
  - RHEUMATOID FACTOR INCREASED [None]
